FAERS Safety Report 9472477 (Version 1)
Quarter: 2013Q3

REPORT INFORMATION
  Report Type: Spontaneous
  Country: US (occurrence: US)
  Receive Date: 20130823
  Receipt Date: 20130823
  Transmission Date: 20140515
  Serious: Yes (Other)
  Sender: FDA-Public Use
  Company Number: US-JNJFOC-20130811790

PATIENT
  Sex: Female

DRUGS (1)
  1. ORTHO EVRA [Suspect]
     Indication: MENSTRUATION IRREGULAR
     Route: 062
     Dates: start: 2003

REACTIONS (4)
  - Foetal death [Recovered/Resolved]
  - Pregnancy with contraceptive patch [Recovered/Resolved]
  - Exposure during pregnancy [Recovered/Resolved]
  - Off label use [Not Recovered/Not Resolved]
